FAERS Safety Report 18682657 (Version 1)
Quarter: 2020Q4

REPORT INFORMATION
  Report Type: Spontaneous
  Country: US (occurrence: US)
  Receive Date: 20201227
  Receipt Date: 20201227
  Transmission Date: 20210114
  Serious: No
  Sender: FDA-Public Use
  Company Number: None

PATIENT
  Sex: Male

DRUGS (3)
  1. CBD OIL [Suspect]
     Active Substance: CANNABIDIOL\HERBALS
     Indication: ANXIETY
     Dates: start: 20201215, end: 20201216
  2. CBD OIL [Suspect]
     Active Substance: CANNABIDIOL\HERBALS
     Indication: STRESS
  3. CBD OIL [Suspect]
     Active Substance: CANNABIDIOL\HERBALS
     Indication: STRESS
     Dates: start: 20201215, end: 20201216

REACTIONS (3)
  - Diarrhoea [None]
  - Product odour abnormal [None]
  - Vomiting [None]

NARRATIVE: CASE EVENT DATE: 20201216
